FAERS Safety Report 11432407 (Version 2)
Quarter: 2015Q3

REPORT INFORMATION
  Report Type: Spontaneous
  Country: CA (occurrence: CA)
  Receive Date: 20150828
  Receipt Date: 20150909
  Transmission Date: 20151125
  Serious: Yes (Other)
  Sender: FDA-Public Use
  Company Number: CA-TEVA-589067USA

PATIENT
  Sex: Female

DRUGS (19)
  1. ATIVAN [Concomitant]
     Active Substance: LORAZEPAM
  2. VITAMIN D [Concomitant]
     Active Substance: CHOLECALCIFEROL
  3. CENTRUM [Concomitant]
     Active Substance: VITAMINS
  4. ELAVIL [Concomitant]
     Active Substance: AMITRIPTYLINE HYDROCHLORIDE
  5. OMEGA 3 COMPLEX [Concomitant]
  6. EMTEC [Concomitant]
  7. CYCLOBENZAPRINE [Concomitant]
     Active Substance: CYCLOBENZAPRINE
  8. VENLAFAXINE XR [Concomitant]
     Active Substance: VENLAFAXINE HYDROCHLORIDE
  9. FLOVENT [Concomitant]
     Active Substance: FLUTICASONE PROPIONATE
  10. BACLOFEN (MNF. UNKNOWN) [Suspect]
     Active Substance: BACLOFEN
     Dosage: 20MG IN AM AND EVENING, 10 PM AFTERNOON
  11. NAPROSYN [Concomitant]
     Active Substance: NAPROXEN
  12. FLEXERIL [Concomitant]
     Active Substance: CYCLOBENZAPRINE HYDROCHLORIDE
  13. VENTOLIN [Concomitant]
     Active Substance: ALBUTEROL SULFATE
  14. GLUCOSAMINE [Concomitant]
     Active Substance: GLUCOSAMINE
  15. AMERGE [Concomitant]
     Active Substance: NARATRIPTAN HYDROCHLORIDE
  16. COPAXONE [Concomitant]
     Active Substance: GLATIRAMER ACETATE
     Indication: MULTIPLE SCLEROSIS
     Dosage: 20 MILLIGRAM DAILY;
     Route: 058
     Dates: start: 20140417
  17. BACLOFEN (MNF. UNKNOWN) [Suspect]
     Active Substance: BACLOFEN
     Indication: MULTIPLE SCLEROSIS
     Dosage: 20 MILLIGRAM DAILY; DECREASED FROM 20MG 3X A DAY
  18. TYLENOL [Concomitant]
     Active Substance: ACETAMINOPHEN
  19. CLARITIN [Concomitant]
     Active Substance: LORATADINE

REACTIONS (2)
  - Multiple sclerosis [Not Recovered/Not Resolved]
  - Muscle twitching [Not Recovered/Not Resolved]
